FAERS Safety Report 24283187 (Version 2)
Quarter: 2024Q3

REPORT INFORMATION
  Report Type: Spontaneous
  Country: FR (occurrence: FR)
  Receive Date: 20240904
  Receipt Date: 20240911
  Transmission Date: 20241016
  Serious: Yes (Other)
  Sender: NOVARTIS
  Company Number: FR-002147023-NVSC2024FR176178

PATIENT
  Age: 86 Year
  Sex: Female
  Weight: 65 kg

DRUGS (14)
  1. FEMARA [Suspect]
     Active Substance: LETROZOLE
     Indication: Product used for unknown indication
     Dosage: 2.5 MG, QD (1 TABLET PER DAY)
     Route: 065
     Dates: start: 20240614, end: 20240617
  2. XGEVA [Concomitant]
     Active Substance: DENOSUMAB
     Indication: Product used for unknown indication
     Dosage: 120 MG, QMO  (1 INJECTION EVERY 28 DAYS)
     Route: 065
     Dates: start: 20240708
  3. CALCIUM [Concomitant]
     Active Substance: CALCIUM
     Indication: Product used for unknown indication
     Dosage: 1 G, QD (SUPPLEMENTATION)
     Route: 065
     Dates: start: 20240704
  4. RIBOCICLIB [Concomitant]
     Active Substance: RIBOCICLIB
     Indication: Product used for unknown indication
     Dosage: 1 DOSAGE FORM, QD (1 PER DAY 3 WEEKS OUT OF 4 (SCHEDULED TO RESUME ON 05- AUG 2024)
     Route: 065
  5. LEVOTHYROXINE [Concomitant]
     Active Substance: LEVOTHYROXINE\LEVOTHYROXINE SODIUM
     Indication: Product used for unknown indication
     Dosage: 50 UG (IN THE MORNING)
     Route: 065
  6. HYDROCORTISONE [Concomitant]
     Active Substance: HYDROCORTISONE\HYDROCORTISONE ACETATE
     Indication: Product used for unknown indication
     Dosage: 15 MG (10 MG IN THE MORNING AND 5 MG AT NOON)
     Route: 065
  7. CHOLECALCIFEROL [Concomitant]
     Active Substance: CHOLECALCIFEROL
     Indication: Product used for unknown indication
     Dosage: 80000 IU, QW
     Route: 065
  8. NEFOPAM [Concomitant]
     Active Substance: NEFOPAM
     Indication: Pain
     Dosage: 20 MG (IF PAIN X 4 PER DAY)
     Route: 065
  9. DOLIPRANE [Concomitant]
     Active Substance: ACETAMINOPHEN
     Indication: Product used for unknown indication
     Dosage: 500 MG (1 TABLET 3X DAILY)
     Route: 048
  10. FENTANYL [Concomitant]
     Active Substance: FENTANYL\FENTANYL CITRATE
     Indication: Product used for unknown indication
     Dosage: 25 UG (PER 72 H)
     Route: 065
  11. LIDOCAINE [Concomitant]
     Active Substance: LIDOCAINE
     Indication: Product used for unknown indication
     Dosage: 700 MG (IN THE EVENING)
     Route: 065
  12. INNOHEP [Concomitant]
     Active Substance: TINZAPARIN SODIUM
     Indication: Product used for unknown indication
     Dosage: UNK (4500 U IN THE EVENING, BEFORE XARELTO (RIVAROXABAN ) 20 MG - STOPPED)
     Route: 065
  13. XARELTO [Concomitant]
     Active Substance: RIVAROXABAN
     Indication: Product used for unknown indication
     Dosage: 20 MG (STOPPED  DURING BONE BIOPSY NOT TAKEN AGAIN AFTERWARDS BY MISTAKE)
     Route: 065
  14. ECONAZOLE [Concomitant]
     Active Substance: ECONAZOLE
     Indication: Product used for unknown indication
     Dosage: UNK, BID (MORNING AND EVENING)
     Route: 065

REACTIONS (4)
  - Malnutrition [Unknown]
  - Nausea [Recovered/Resolved]
  - Vomiting [Unknown]
  - Anaemia [Unknown]

NARRATIVE: CASE EVENT DATE: 20240806
